FAERS Safety Report 20680146 (Version 3)
Quarter: 2022Q2

REPORT INFORMATION
  Report Type: Spontaneous
  Country: BG (occurrence: BG)
  Receive Date: 20220406
  Receipt Date: 20220503
  Transmission Date: 20220720
  Serious: Yes (Other)
  Sender: FDA-Public Use
  Company Number: BG-MYLANLABS-2022M1024349

PATIENT
  Age: 40 Year
  Sex: Female

DRUGS (5)
  1. DYMISTA [Suspect]
     Active Substance: AZELASTINE HYDROCHLORIDE\FLUTICASONE PROPIONATE
     Indication: Rhinitis allergic
     Dosage: 137/50MCG QD (TWO/THREE SPRAYS IN EACH NOSTRIL)
     Route: 045
     Dates: start: 202201, end: 20220315
  2. MUPIROCIN [Concomitant]
     Active Substance: MUPIROCIN
     Indication: Rhinitis allergic
     Dosage: UNK BEFORE THREE MONTHS
     Route: 045
     Dates: end: 20220315
  3. ZYRTEC [Concomitant]
     Active Substance: CETIRIZINE HYDROCHLORIDE
     Indication: Rhinitis allergic
     Dosage: 1 DOSAGE FORM, QD BEFORE THREE MONTHS
     Route: 048
  4. Vibrocil [Concomitant]
     Indication: Rhinitis allergic
     Dosage: UNK, START DATE BEFORE START OF TREATMENT WITH DYMISTA STOP DATE BEFORE 06-APR-2022
     Route: 045
  5. TRAMAZOLINE HYDROCHLORIDE [Concomitant]
     Active Substance: TRAMAZOLINE HYDROCHLORIDE
     Indication: Rhinitis allergic
     Dosage: UNK, PRN BEFORE START OF TREATMENT WITH DYMISTA
     Route: 045

REACTIONS (6)
  - Rhinalgia [Not Recovered/Not Resolved]
  - Nasal mucosa atrophy [Recovered/Resolved]
  - Nasal mucosal erosion [Recovered/Resolved]
  - Off label use [Recovered/Resolved]
  - Medication error [Recovered/Resolved]
  - Trigeminal neuralgia [Unknown]

NARRATIVE: CASE EVENT DATE: 20220101
